FAERS Safety Report 13687203 (Version 1)
Quarter: 2017Q2

REPORT INFORMATION
  Report Type: Spontaneous
  Country: US (occurrence: US)
  Receive Date: 20170623
  Receipt Date: 20170623
  Transmission Date: 20170830
  Serious: Yes (Hospitalization)
  Sender: FDA-Public Use
  Company Number: US-009507513-1706USA008903

PATIENT
  Age: 78 Year
  Sex: Male

DRUGS (15)
  1. CHOLECALCIFEROL [Suspect]
     Active Substance: CHOLECALCIFEROL
     Dosage: 2000 IU, UNK
  2. CHOLECALCIFEROL [Suspect]
     Active Substance: CHOLECALCIFEROL
     Dosage: 5000 IU, UNK
  3. TEMAZEPAM. [Concomitant]
     Active Substance: TEMAZEPAM
     Dosage: UNK
     Dates: start: 201503
  4. CHOLECALCIFEROL [Suspect]
     Active Substance: CHOLECALCIFEROL
     Dosage: VARIOUS 1000-5000 IU, UNK
     Dates: start: 201502
  5. ONE-A-DAY ESSENTIAL VITAMINS [Concomitant]
     Dosage: UNK
     Dates: start: 201502
  6. DEXAMETHASONE. [Suspect]
     Active Substance: DEXAMETHASONE
     Dosage: 8-10 PILLS AT TIME OF ZOMETA INFUSION
     Route: 048
  7. SONATA [Suspect]
     Active Substance: ZALEPLON
  8. ZOMETA [Concomitant]
     Active Substance: ZOLEDRONIC ACID
     Dosage: UNK
     Dates: start: 201502
  9. REVLIMID [Concomitant]
     Active Substance: LENALIDOMIDE
     Dosage: 15 MG, 21 DAYS THEN WEEK OFF
     Dates: start: 201705
  10. REVLIMID [Concomitant]
     Active Substance: LENALIDOMIDE
     Dosage: 25 MG, 21 DAYS THEN WEEK OFF
     Dates: start: 201502, end: 201704
  11. CALTRATE [Suspect]
     Active Substance: CALCIUM CARBONATE
     Dosage: UNK
  12. CALTRATE [Suspect]
     Active Substance: CALCIUM CARBONATE
     Dosage: 500-600 MG, TWICE A DAY
     Dates: start: 20170505
  13. CHOLECALCIFEROL [Suspect]
     Active Substance: CHOLECALCIFEROL
     Dosage: 1000 IU, UNK
  14. CHOLECALCIFEROL [Suspect]
     Active Substance: CHOLECALCIFEROL
     Dosage: 1000 IU, PER DAY
     Dates: start: 20170505
  15. ALLOPURINOL. [Concomitant]
     Active Substance: ALLOPURINOL
     Dosage: UNK
     Dates: start: 2008

REACTIONS (6)
  - Fatigue [Not Recovered/Not Resolved]
  - Dyspnoea [Not Recovered/Not Resolved]
  - Hiccups [Recovered/Resolved]
  - Aphasia [Not Recovered/Not Resolved]
  - Musculoskeletal chest pain [Not Recovered/Not Resolved]
  - Feeling abnormal [Unknown]

NARRATIVE: CASE EVENT DATE: 201703
